FAERS Safety Report 4375006-1 (Version None)
Quarter: 2004Q2

REPORT INFORMATION
  Report Type: 
  Country: None (occurrence: None)
  Receive Date: 20040608
  Receipt Date: 20030519
  Transmission Date: 20050107
  Serious: Yes (Life-Threatening, Hospitalization)
  Sender: FDA-Public Use
  Company Number: WAES 0305USA02107

PATIENT
  Age: 78 Year
  Sex: Female

DRUGS (6)
  1. COSOPT [Suspect]
     Dosage: 2 DROPS/BID/OPHT
     Route: 047
     Dates: start: 20030501, end: 20030517
  2. IMDUR [Concomitant]
  3. LESCOL [Concomitant]
  4. PLAVIX [Concomitant]
  5. TRIAZOLAM [Concomitant]
  6. VERAPAMIL [Concomitant]

REACTIONS (1)
  - DYSPNOEA [None]
